FAERS Safety Report 12176506 (Version 1)
Quarter: 2016Q1

REPORT INFORMATION
  Report Type: Spontaneous
  Country: US (occurrence: US)
  Receive Date: 20160314
  Receipt Date: 20160314
  Transmission Date: 20160526
  Serious: Yes (Other)
  Sender: FDA-Public Use
  Company Number: US-AKORN PHARMACEUTICALS-2014VER00371

PATIENT
  Age: 34 Year
  Sex: Male
  Weight: 65 kg

DRUGS (8)
  1. VITAMIN D [Concomitant]
     Active Substance: CHOLECALCIFEROL
  2. POTASSIUM IODIDE [Concomitant]
     Active Substance: POTASSIUM IODIDE
  3. MYORISAN [Suspect]
     Active Substance: ISOTRETINOIN
     Indication: ACNE CYSTIC
     Dosage: 40 MG, 1X/DAY
     Route: 048
     Dates: start: 20141107, end: 20141216
  4. ASACOL [Concomitant]
     Active Substance: MESALAMINE
  5. VITAMIN C [Concomitant]
     Active Substance: ASCORBIC ACID
  6. MYORISAN [Suspect]
     Active Substance: ISOTRETINOIN
     Indication: ACNE CYSTIC
     Dosage: 40 MG, 1X/DAY
     Route: 048
     Dates: start: 20141107, end: 20141216
  7. PROPECIA [Concomitant]
     Active Substance: FINASTERIDE
  8. MULTIVITAMIN [Concomitant]
     Active Substance: VITAMINS

REACTIONS (2)
  - Aspartate aminotransferase increased [Recovered/Resolved]
  - Alanine aminotransferase increased [Recovering/Resolving]

NARRATIVE: CASE EVENT DATE: 20141103
